FAERS Safety Report 8601894-6 (Version None)
Quarter: 2012Q3

REPORT INFORMATION
  Report Type: 
  Country: None (occurrence: None)
  Receive Date: 20120817
  Receipt Date: 20120810
  Transmission Date: 20120928
  Serious: No
  Sender: FDA-Public Use
  Company Number: US-B.I. PHARMACEUTICALS,INC./RIDGEFIELD-2012-BP-18836BP

PATIENT
  Sex: Female

DRUGS (12)
  1. UNKNOWN BLOOD PRESSURE MEDICATION [Concomitant]
     Indication: BLOOD PRESSURE ABNORMAL
     Route: 048
  2. SPIRIVA [Suspect]
     Indication: DYSPNOEA
     Dosage: 18 MCG
     Route: 055
     Dates: start: 20120101
  3. UNKNOWN BLOOD PRESSURE MEDICATION [Concomitant]
     Route: 048
  4. UNKNOWN BLOOD PRESSURE MEDICATION [Concomitant]
     Route: 048
  5. FLUTICASONE PROPIONATE [Concomitant]
     Indication: DYSPNOEA
  6. UNKNOWN BLOOD PRESSURE MEDICATION [Concomitant]
     Route: 048
  7. UNKNOWN BLOOD PRESSURE MEDICATION [Concomitant]
     Route: 048
  8. UNKNOWN BLOOD PRESSURE MEDICATION [Concomitant]
     Route: 048
  9. SPIRIVA [Suspect]
     Dosage: 18 MCG
     Route: 048
     Dates: start: 20120810, end: 20120810
  10. UNKNOWN BLOOD PRESSURE MEDICATION [Concomitant]
     Indication: CONVULSION
     Route: 048
  11. UNKNOWN BLOOD PRESSURE MEDICATION [Concomitant]
     Indication: BLOOD CHOLESTEROL INCREASED
     Route: 048
  12. UNKNOWN BLOOD PRESSURE MEDICATION [Concomitant]
     Route: 048

REACTIONS (1)
  - INCORRECT ROUTE OF DRUG ADMINISTRATION [None]
